FAERS Safety Report 25193889 (Version 2)
Quarter: 2025Q3

REPORT INFORMATION
  Report Type: Spontaneous
  Country: US (occurrence: US)
  Receive Date: 20250414
  Receipt Date: 20250714
  Transmission Date: 20251021
  Serious: Yes (Death)
  Sender: VERTEX
  Company Number: US-VERTEX PHARMACEUTICALS-2025-005929

PATIENT
  Sex: Female

DRUGS (1)
  1. TRIKAFTA [Suspect]
     Active Substance: ELEXACAFTOR\IVACAFTOR\TEZACAFTOR
     Indication: Cystic fibrosis
     Route: 048
     Dates: start: 20191110, end: 20220818

REACTIONS (2)
  - Lung transplant rejection [Fatal]
  - Pneumonia cytomegaloviral [Fatal]
